FAERS Safety Report 6373226-8 (Version None)
Quarter: 2009Q3

REPORT INFORMATION
  Report Type: 
  Country: None (occurrence: None)
  Receive Date: 20090924
  Receipt Date: 20090123
  Transmission Date: 20100115
  Serious: No
  Sender: FDA-Public Use
  Company Number: US-ASTRAZENECA-2009UW02254

PATIENT
  Age: 37 Year
  Sex: Female

DRUGS (2)
  1. SEROQUEL [Suspect]
     Route: 048
     Dates: start: 20081223
  2. ABILIFY [Concomitant]

REACTIONS (2)
  - IRRITABILITY [None]
  - MALAISE [None]
